FAERS Safety Report 15665506 (Version 1)
Quarter: 2018Q4

REPORT INFORMATION
  Report Type: Report from Study
  Country: US (occurrence: US)
  Receive Date: 20181128
  Receipt Date: 20181128
  Transmission Date: 20190205
  Serious: Yes (Death, Other)
  Sender: FDA-Public Use
  Company Number: US-JNJFOC-20181033559

PATIENT
  Age: 28 Year
  Sex: Male

DRUGS (3)
  1. IMBRUVICA [Suspect]
     Active Substance: IBRUTINIB
     Indication: ACUTE GRAFT VERSUS HOST DISEASE
     Dosage: 280 MG, QD
     Route: 048
     Dates: start: 20180920
  2. VORICONAZOLE. [Concomitant]
     Active Substance: VORICONAZOLE
  3. JAKAFI [Concomitant]
     Active Substance: RUXOLITINIB

REACTIONS (6)
  - Disease progression [Fatal]
  - Product use in unapproved indication [Unknown]
  - Oesophagitis [Unknown]
  - Off label use [Unknown]
  - Gastrointestinal haemorrhage [Unknown]
  - Eye operation [Recovering/Resolving]

NARRATIVE: CASE EVENT DATE: 20180920
